FAERS Safety Report 14782634 (Version 2)
Quarter: 2018Q2

REPORT INFORMATION
  Report Type: Spontaneous
  Country: DE (occurrence: DE)
  Receive Date: 20180420
  Receipt Date: 20180524
  Transmission Date: 20180711
  Serious: Yes (Other)
  Sender: FDA-Public Use
  Company Number: DE-DRREDDYS-GER/GER/18/0097741

PATIENT
  Age: 43 Year
  Sex: Female
  Weight: 83 kg

DRUGS (2)
  1. CIPROFLOXACIN. [Suspect]
     Active Substance: CIPROFLOXACIN
     Indication: DIVERTICULITIS
     Dosage: 400MG
     Route: 048
     Dates: start: 20171030
  2. METRONIDAZOLE. [Concomitant]
     Active Substance: METRONIDAZOLE
     Indication: DIVERTICULITIS
     Dates: start: 20171030, end: 20171108

REACTIONS (30)
  - Eye pain [Not Recovered/Not Resolved]
  - Sensory disturbance [Unknown]
  - Palpitations [Recovered/Resolved]
  - Nausea [Not Recovered/Not Resolved]
  - Depression [Unknown]
  - Tension headache [Recovering/Resolving]
  - Hepatic enzyme increased [Unknown]
  - Arthralgia [Recovered/Resolved]
  - Seizure [Unknown]
  - Neurological symptom [Unknown]
  - Asthenia [Recovered/Resolved]
  - Dysaesthesia [Not Recovered/Not Resolved]
  - Balance disorder [Unknown]
  - Depersonalisation/derealisation disorder [Unknown]
  - Myalgia [Not Recovered/Not Resolved]
  - Circulatory collapse [Recovered/Resolved]
  - Headache [Recovering/Resolving]
  - Abdominal discomfort [Not Recovered/Not Resolved]
  - Anxiety [Unknown]
  - Dizziness [Recovering/Resolving]
  - Hallucination [Not Recovered/Not Resolved]
  - Insomnia [Unknown]
  - Rash [Recovered/Resolved]
  - Facial paralysis [Recovered/Resolved]
  - Tinnitus [Recovered/Resolved]
  - Tremor [Recovered/Resolved]
  - Cortisol increased [Unknown]
  - Fatigue [Recovered/Resolved]
  - Dyspnoea [Recovered/Resolved]
  - Panic attack [Recovered/Resolved]

NARRATIVE: CASE EVENT DATE: 20171030
